FAERS Safety Report 24356499 (Version 1)
Quarter: 2024Q3

REPORT INFORMATION
  Report Type: Report from Study
  Country: GB (occurrence: GB)
  Receive Date: 20240924
  Receipt Date: 20240924
  Transmission Date: 20241017
  Serious: Yes (Other)
  Sender: SANDOZ
  Company Number: GB-SANDOZ-SDZ2024GB041246

PATIENT
  Sex: Female

DRUGS (2)
  1. HYRIMOZ [Suspect]
     Active Substance: ADALIMUMAB-ADAZ
     Indication: Iridocyclitis
     Dosage: 40 MG, Q2W (40 MG/0.4 ML) (SOLUTION FOR INJECTION PER FILLED PEN)
     Route: 058
  2. HYRIMOZ [Suspect]
     Active Substance: ADALIMUMAB-ADAZ
     Dosage: 40 MG, Q2W (40 MG/0.8 ML) (SOLUTION FOR INJECTION PER FILLED PEN)
     Route: 058

REACTIONS (6)
  - Post-traumatic pain [Unknown]
  - Fall [Unknown]
  - Mouth ulceration [Recovering/Resolving]
  - Vision blurred [Unknown]
  - Cystitis [Recovered/Resolved]
  - Urinary tract infection [Recovering/Resolving]
